FAERS Safety Report 12499359 (Version 1)
Quarter: 2016Q2

REPORT INFORMATION
  Report Type: Spontaneous
  Country: US (occurrence: None)
  Receive Date: 20160614
  Receipt Date: 20160614
  Transmission Date: 20160815
  Serious: No
  Sender: FDA-Public Use
  Company Number: PQC-16-0126

PATIENT
  Sex: Female
  Weight: 68.04 kg

DRUGS (1)
  1. SUNFORGETTABLE LOOSE MINERAL SUNSCREEN SPF 30 [Suspect]
     Active Substance: TITANIUM DIOXIDE\ZINC OXIDE
     Indication: PROPHYLAXIS AGAINST SOLAR RADIATION
     Dosage: 060-TOPICAL
     Route: 061
     Dates: start: 20160320

REACTIONS (1)
  - Sunburn [None]

NARRATIVE: CASE EVENT DATE: 20160320
